FAERS Safety Report 4903669-8 (Version None)
Quarter: 2006Q1

REPORT INFORMATION
  Report Type: 
  Country: None (occurrence: None)
  Receive Date: 20060202
  Receipt Date: 20060120
  Transmission Date: 20060701
  Serious: Yes (Death, Hospitalization)
  Sender: FDA-Public Use
  Company Number: 2006006147

PATIENT
  Age: 66 Year
  Sex: Male

DRUGS (3)
  1. FLUCONAZOLE [Suspect]
     Indication: ORAL CANDIDIASIS
     Dosage: ORAL
     Route: 048
     Dates: start: 20050901
  2. CEFUROXIME AXETIL [Suspect]
     Indication: ILL-DEFINED DISORDER
     Dosage: ORAL
     Route: 048
     Dates: start: 20051011, end: 20051023
  3. LEVOFLOXACIN [Suspect]
     Indication: ILL-DEFINED DISORDER
     Dosage: ORAL
     Route: 048
     Dates: start: 20051011, end: 20051019

REACTIONS (14)
  - ANAEMIA [None]
  - CEREBRAL HAEMORRHAGE [None]
  - COUGH [None]
  - DISEASE RECURRENCE [None]
  - DISTURBANCE IN ATTENTION [None]
  - EPISTAXIS [None]
  - FUNGAL INFECTION [None]
  - HAEMATEMESIS [None]
  - HAEMOPTYSIS [None]
  - HEADACHE [None]
  - PURPURA [None]
  - PYREXIA [None]
  - THROMBOCYTOPENIA [None]
  - TUBERCULOSIS [None]
